FAERS Safety Report 9725332 (Version 1)
Quarter: 2013Q4

REPORT INFORMATION
  Report Type: Spontaneous
  Country: US (occurrence: None)
  Receive Date: 20131129
  Receipt Date: 20131129
  Transmission Date: 20140711
  Serious: Yes (Hospitalization)
  Sender: FDA-Public Use
  Company Number: 2013-US-003608

PATIENT
  Sex: Female

DRUGS (2)
  1. XYREM (SODIUM OXYBATE) ORAL SOLUTION, 500M/ML [Suspect]
     Indication: CATAPLEXY
  2. XYREM (SODIUM OXYBATE) ORAL SOLUTION, 500M/ML [Suspect]
     Indication: NARCOLEPSY

REACTIONS (1)
  - Mental disorder [None]
